FAERS Safety Report 17256497 (Version 6)
Quarter: 2020Q4

REPORT INFORMATION
  Report Type: Spontaneous
  Country: US (occurrence: US)
  Receive Date: 20200110
  Receipt Date: 20201215
  Transmission Date: 20210113
  Serious: No
  Sender: FDA-Public Use
  Company Number: NVSC2020US003901

PATIENT
  Sex: Female

DRUGS (4)
  1. PIQRAY [Suspect]
     Active Substance: ALPELISIB
     Indication: BREAST CANCER
     Dosage: 300 MG
     Route: 065
     Dates: start: 20191116
  2. PIQRAY [Suspect]
     Active Substance: ALPELISIB
     Dosage: 300 MG
     Route: 065
  3. AFINITOR [Suspect]
     Active Substance: EVEROLIMUS
     Indication: PRODUCT USED FOR UNKNOWN INDICATION
     Dosage: UNK
     Route: 065
  4. PIQRAY [Suspect]
     Active Substance: ALPELISIB
     Dosage: 150 MG
     Route: 065
     Dates: start: 20191216

REACTIONS (8)
  - Skin disorder [Unknown]
  - Vitreous floaters [Unknown]
  - Discomfort [Unknown]
  - Cough [Unknown]
  - Drug hypersensitivity [Unknown]
  - Genital blister [Unknown]
  - Dysuria [Unknown]
  - Oral mucosal blistering [Unknown]
